FAERS Safety Report 7268038-7 (Version None)
Quarter: 2011Q1

REPORT INFORMATION
  Report Type: 
  Country: None (occurrence: None)
  Receive Date: 20110124
  Receipt Date: 20110113
  Transmission Date: 20110831
  Serious: Yes (Other)
  Sender: FDA-Public Use
  Company Number: PT-ACCORD-007854

PATIENT
  Age: 72 Year
  Sex: Male

DRUGS (1)
  1. MITOMYCIN [Suspect]
     Indication: BLADDER CANCER
     Dosage: 40.00-MG- / INTRAVESICAL
     Route: 043

REACTIONS (4)
  - MORPHOEA [None]
  - OFF LABEL USE [None]
  - SCLERODERMA [None]
  - REFUSAL OF TREATMENT BY PATIENT [None]
